FAERS Safety Report 24299109 (Version 1)
Quarter: 2024Q3

REPORT INFORMATION
  Report Type: Spontaneous
  Country: FR (occurrence: FR)
  Receive Date: 20240909
  Receipt Date: 20240909
  Transmission Date: 20241017
  Serious: Yes (Other)
  Sender: VERTEX
  Company Number: FR-VERTEX PHARMACEUTICALS-2024-014017

PATIENT
  Age: 38 Year
  Sex: Male

DRUGS (2)
  1. ELEXACAFTOR\IVACAFTOR\TEZACAFTOR [Suspect]
     Active Substance: ELEXACAFTOR\IVACAFTOR\TEZACAFTOR
     Indication: Cystic fibrosis
     Dosage: FULL DOSE
     Route: 048
     Dates: start: 202107
  2. KALYDECO [Suspect]
     Active Substance: IVACAFTOR
     Indication: Cystic fibrosis
     Dosage: UNKNOWN DOSAGE REGIMEN
     Route: 048
     Dates: start: 202107

REACTIONS (4)
  - Hypophosphataemia [Unknown]
  - Bone pain [Unknown]
  - Bone fissure [Unknown]
  - Hyperphosphaturia [Unknown]

NARRATIVE: CASE EVENT DATE: 20230901
